FAERS Safety Report 17274611 (Version 3)
Quarter: 2020Q1

REPORT INFORMATION
  Report Type: Spontaneous
  Country: JP (occurrence: JP)
  Receive Date: 20200115
  Receipt Date: 20200203
  Transmission Date: 20200409
  Serious: Yes (Death, Life-Threatening)
  Sender: FDA-Public Use
  Company Number: JP-DSJP-DSJ-2020-101248AA

PATIENT

DRUGS (11)
  1. LIXIANA OD TABLETS 30MG [Suspect]
     Active Substance: EDOXABAN TOSYLATE
     Indication: ATRIAL FIBRILLATION
     Dosage: 30 MG, QD
     Route: 048
     Dates: start: 20190313, end: 201912
  2. ATENOLOL. [Concomitant]
     Active Substance: ATENOLOL
     Dosage: 25 MG, QD
     Route: 048
     Dates: start: 20170628, end: 201912
  3. MAGNESIUM OXIDE. [Concomitant]
     Active Substance: MAGNESIUM OXIDE
     Dosage: 660 MG, BID
     Route: 048
     Dates: start: 20190920, end: 201912
  4. FERRUM                             /00023505/ [Concomitant]
     Dosage: 100 MG, QD
     Route: 048
     Dates: start: 20190419, end: 201912
  5. JARDIANCE [Concomitant]
     Active Substance: EMPAGLIFLOZIN
     Dosage: 10 MG, QD
     Route: 048
     Dates: start: 20190708, end: 201912
  6. SELARA [Concomitant]
     Active Substance: EPLERENONE
     Dosage: 50 MG, QD
     Route: 048
     Dates: start: 20190624, end: 201912
  7. FEBURIC [Concomitant]
     Active Substance: FEBUXOSTAT
     Dosage: 10 MG, QD
     Route: 048
     Dates: start: 20121005, end: 201912
  8. ADALAT [Concomitant]
     Active Substance: NIFEDIPINE
     Dosage: 40 MG, BID
     Route: 048
     Dates: start: 20161026, end: 201912
  9. MERCAZOLE                          /00022901/ [Concomitant]
     Active Substance: METHIMAZOLE
     Dosage: 5 MG, QD
     Route: 048
     Dates: start: 20140904, end: 201912
  10. SHAKUYAKUKANZOTO [Concomitant]
     Active Substance: HERBALS
     Dosage: 2.5 G, QD
     Route: 048
     Dates: start: 201912, end: 201912
  11. OLMESARTAN                         /01635402/ [Concomitant]
     Active Substance: OLMESARTAN MEDOXOMIL
     Dosage: 40 MG, QD
     Route: 048
     Dates: start: 20170927, end: 201912

REACTIONS (5)
  - Loss of consciousness [Fatal]
  - Subarachnoid haemorrhage [Fatal]
  - Brain contusion [Fatal]
  - Skull fracture [Fatal]
  - Fall [Fatal]

NARRATIVE: CASE EVENT DATE: 20191219
